FAERS Safety Report 7716878-X (Version None)
Quarter: 2011Q3

REPORT INFORMATION
  Report Type: 
  Country: None (occurrence: None)
  Receive Date: 20110829
  Receipt Date: 20110824
  Transmission Date: 20111222
  Serious: Yes (Other)
  Sender: FDA-Public Use
  Company Number: US-BAYER-2011-077651

PATIENT
  Age: 32 Year
  Sex: Female

DRUGS (2)
  1. AVELOX [Suspect]
     Dosage: UNK
  2. ADVAIR DISKUS 100/50 [Concomitant]

REACTIONS (1)
  - LOSS OF CONSCIOUSNESS [None]
